FAERS Safety Report 4839576-9 (Version None)
Quarter: 2005Q4

REPORT INFORMATION
  Report Type: 
  Country: None (occurrence: None)
  Receive Date: 20051128
  Receipt Date: 20051128
  Transmission Date: 20060501
  Serious: Yes (Hospitalization)
  Sender: FDA-Public Use
  Company Number: None

PATIENT
  Age: 61 Year
  Sex: Male
  Weight: 88.6 kg

DRUGS (2)
  1. METOPROLOL [Suspect]
     Indication: HYPERTENSION
     Dosage: 25MG   Q12H   PO
     Route: 048
  2. DILTIAZEM [Suspect]
     Indication: CORONARY ARTERY DISEASE
     Dosage: 240MG  QD  PO
     Route: 048

REACTIONS (3)
  - ATRIAL FLUTTER [None]
  - BRADYCARDIA [None]
  - DIZZINESS [None]
